FAERS Safety Report 9668006 (Version 1)
Quarter: 2013Q4

REPORT INFORMATION
  Report Type: Spontaneous
  Country: US (occurrence: US)
  Receive Date: 20131104
  Receipt Date: 20131104
  Transmission Date: 20140711
  Serious: Yes (Other)
  Sender: FDA-Public Use
  Company Number: US-PFIZER INC-2013310362

PATIENT
  Age: 70 Year
  Sex: Female

DRUGS (1)
  1. PREMPRO [Suspect]
     Dosage: ESTROGENS CONJUGATED 0.625 MG / MEDROXYPROGESTERONE ACETATE 2.5 MG, UNK

REACTIONS (1)
  - Endometrial hyperplasia [Unknown]
